FAERS Safety Report 14368668 (Version 11)
Quarter: 2018Q3

REPORT INFORMATION
  Report Type: Report from Study
  Country: DE (occurrence: DE)
  Receive Date: 20180109
  Receipt Date: 20180713
  Transmission Date: 20181010
  Serious: Yes (Hospitalization, Other)
  Sender: FDA-Public Use
  Company Number: DE-B.I. PHARMACEUTICALS,INC./RIDGEFIELD-2017-BI-060506

PATIENT
  Age: 75 Year
  Sex: Female
  Weight: 49 kg

DRUGS (8)
  1. BIBF 1120 [Suspect]
     Active Substance: NINTEDANIB
     Indication: PLEURAL MESOTHELIOMA MALIGNANT
     Route: 048
     Dates: start: 20171006, end: 20171221
  2. BIBF 1120 [Suspect]
     Active Substance: NINTEDANIB
     Route: 048
     Dates: end: 20180102
  3. PEMETREXED. [Suspect]
     Active Substance: PEMETREXED
     Indication: PLEURAL MESOTHELIOMA MALIGNANT
     Dosage: STRENGTH: 500MG/M^2
     Route: 042
     Dates: start: 20171005, end: 20171220
  4. FOLSAN [Concomitant]
     Active Substance: FOLIC ACID
     Indication: CHEMOTHERAPY
     Route: 048
     Dates: start: 20170922
  5. IBUPROFEN. [Concomitant]
     Active Substance: IBUPROFEN
     Indication: PAIN
     Route: 048
     Dates: start: 201708
  6. PANTOPRAZOL [Concomitant]
     Active Substance: PANTOPRAZOLE SODIUM
     Indication: GASTRITIS PROPHYLAXIS
     Route: 048
     Dates: start: 201708
  7. CISPLATIN. [Suspect]
     Active Substance: CISPLATIN
     Indication: PLEURAL MESOTHELIOMA MALIGNANT
     Dosage: STRENGTH: 75MG/M^2
     Route: 042
     Dates: start: 20171005, end: 20171005
  8. CISPLATIN. [Suspect]
     Active Substance: CISPLATIN
     Dosage: STRENGTH: 75MG/M^2
     Route: 042
     Dates: end: 20171220

REACTIONS (8)
  - Nausea [Recovered/Resolved]
  - Pulmonary embolism [Recovered/Resolved]
  - Dyspnoea [Not Recovered/Not Resolved]
  - Performance status decreased [Recovered/Resolved]
  - Subcutaneous emphysema [Recovered/Resolved]
  - Pancytopenia [Recovered/Resolved]
  - Vomiting [Recovered/Resolved]
  - Pneumothorax [Recovered/Resolved]

NARRATIVE: CASE EVENT DATE: 20171108
